FAERS Safety Report 7861897-6 (Version None)
Quarter: 2011Q4

REPORT INFORMATION
  Report Type: 
  Country: None (occurrence: None)
  Receive Date: 20111027
  Receipt Date: 20110927
  Transmission Date: 20120403
  Serious: Yes (Death, Hospitalization)
  Sender: FDA-Public Use
  Company Number: HU-ROCHE-591511

PATIENT
  Sex: Male
  Weight: 57 kg

DRUGS (3)
  1. AVASTIN [Suspect]
     Indication: RENAL CELL CARCINOMA
     Dosage: FREQUENCY REPORTED AS BI WEEKLY
     Route: 042
     Dates: start: 20080925, end: 20081008
  2. INTERFERON ALFA [Suspect]
     Indication: RENAL CELL CARCINOMA
     Dosage: REPORTED AS ROFERON.DOSE: 3 MU. FREQUENCY WEEKLY 3
     Route: 058
     Dates: start: 20080925, end: 20081008
  3. ENSURE [Concomitant]
     Dosage: (AMINO ACID NOS, MINERAL NOS, VITAMIN NOS)
     Dates: start: 20080918

REACTIONS (2)
  - DECREASED APPETITE [None]
  - ASTHENIA [None]
